FAERS Safety Report 15632445 (Version 2)
Quarter: 2018Q4

REPORT INFORMATION
  Report Type: Report from Study
  Country: BR (occurrence: BR)
  Receive Date: 20181119
  Receipt Date: 20181122
  Transmission Date: 20190205
  Serious: Yes (Hospitalization)
  Sender: FDA-Public Use
  Company Number: BR-JNJFOC-20180221962

PATIENT
  Age: 63 Year
  Sex: Female
  Weight: 69 kg

DRUGS (8)
  1. NIMESULIDE [Concomitant]
     Active Substance: NIMESULIDE
     Route: 065
  2. SIMPONI [Suspect]
     Active Substance: GOLIMUMAB
     Indication: RHEUMATOID ARTHRITIS
     Route: 058
     Dates: start: 2016
  3. CALCIUM [Concomitant]
     Active Substance: CALCIUM
     Route: 065
  4. FAMOTIDINE. [Concomitant]
     Active Substance: FAMOTIDINE
     Route: 065
  5. DEFLAZACORT [Concomitant]
     Active Substance: DEFLAZACORT
     Route: 065
  6. SIMPONI [Suspect]
     Active Substance: GOLIMUMAB
     Indication: RHEUMATOID ARTHRITIS
     Route: 058
     Dates: start: 20181016
  7. COREG [Concomitant]
     Active Substance: CARVEDILOL
     Route: 065
  8. SIMPONI [Suspect]
     Active Substance: GOLIMUMAB
     Indication: RHEUMATOID ARTHRITIS
     Route: 058
     Dates: start: 20150924

REACTIONS (15)
  - Arthralgia [Not Recovered/Not Resolved]
  - Candida infection [Not Recovered/Not Resolved]
  - Gastrointestinal infection [Not Recovered/Not Resolved]
  - Sinusitis [Unknown]
  - Bone disorder [Not Recovered/Not Resolved]
  - Pharyngitis [Unknown]
  - Rhinitis [Unknown]
  - Accidental exposure to product [Unknown]
  - Application site pruritus [Recovered/Resolved]
  - Blood test abnormal [Unknown]
  - Product availability issue [Unknown]
  - Product dose omission [Unknown]
  - Injection site bruising [Recovered/Resolved]
  - Labyrinthitis [Unknown]
  - Product leakage [Unknown]

NARRATIVE: CASE EVENT DATE: 201710
